FAERS Safety Report 5846257-1 (Version None)
Quarter: 2008Q3

REPORT INFORMATION
  Report Type: 
  Country: None (occurrence: None)
  Receive Date: 20080813
  Receipt Date: 20080811
  Transmission Date: 20090109
  Serious: Yes (Hospitalization)
  Sender: FDA-Public Use
  Company Number: 2008SP010098

PATIENT
  Age: 69 Year
  Sex: Male

DRUGS (8)
  1. TEMODAL [Suspect]
     Indication: GLIOBLASTOMA MULTIFORME
     Dosage: 350 MG; QD; PO
     Route: 048
     Dates: start: 20080110, end: 20080505
  2. TEMODAL [Suspect]
  3. DOXORUBICIN HCL [Suspect]
     Indication: GLIOBLASTOMA MULTIFORME
     Dosage: 80 MG; QM; IV
     Route: 042
     Dates: start: 20080110, end: 20080501
  4. DOXORUBICIN HCL [Suspect]
  5. METFORMIN HCL [Concomitant]
  6. DEXAMETHASONE TAB [Concomitant]
  7. COVERSYL [Concomitant]
  8. BACTRIM [Concomitant]

REACTIONS (5)
  - DEHYDRATION [None]
  - DISEASE PROGRESSION [None]
  - HYPOPHAGIA [None]
  - MOBILITY DECREASED [None]
  - MUCOSAL INFLAMMATION [None]
